FAERS Safety Report 18659912 (Version 7)
Quarter: 2023Q2

REPORT INFORMATION
  Report Type: Spontaneous
  Country: CA (occurrence: CA)
  Receive Date: 20201224
  Receipt Date: 20230531
  Transmission Date: 20230721
  Serious: Yes (Hospitalization, Other)
  Sender: FDA-Public Use
  Company Number: CA-PFIZER INC-2020471156

PATIENT
  Age: 81 Year
  Sex: Female

DRUGS (12)
  1. RUXIENCE [Suspect]
     Active Substance: RITUXIMAB-PVVR
     Indication: Rheumatoid arthritis
     Dosage: 1000 MG, AT DAY 1 ONCE
     Route: 042
     Dates: start: 20210125, end: 20210125
  2. RUXIENCE [Suspect]
     Active Substance: RITUXIMAB-PVVR
     Dosage: 1000 MG, EVERY 6 MONTHS X 2
     Route: 042
     Dates: start: 20210730
  3. RUXIENCE [Suspect]
     Active Substance: RITUXIMAB-PVVR
     Dosage: 1000 MG, EVERY 6 MONTHS X 2
     Route: 042
  4. CALCIUM [Concomitant]
     Active Substance: CALCIUM
     Dosage: 1 DF
  5. ELIQUIS [Concomitant]
     Active Substance: APIXABAN
     Dosage: 1 DF
  6. FUROSEMIDE [Concomitant]
     Active Substance: FUROSEMIDE
     Dosage: 1 DF
  7. HYDROXYCHLOROQUINE [Concomitant]
     Active Substance: HYDROXYCHLOROQUINE
     Dosage: 200 MG, 2X/DAY
  8. LAMIVUDINE [Concomitant]
     Active Substance: LAMIVUDINE
     Dosage: 100 MG Q
  9. LAMIVUDINE [Concomitant]
     Active Substance: LAMIVUDINE
     Dosage: 1 DF
  10. PLAQUENIL [Concomitant]
     Active Substance: HYDROXYCHLOROQUINE SULFATE
     Dosage: 1 DF
  11. SULFASALAZINE [Concomitant]
     Active Substance: SULFASALAZINE
     Dosage: 500 MG, 2X/DAY
     Route: 065
  12. VITAMIN D3 [Concomitant]
     Active Substance: CHOLECALCIFEROL
     Dosage: 1 DF

REACTIONS (9)
  - Lower limb fracture [Recovering/Resolving]
  - Cutaneous vasculitis [Unknown]
  - Polyneuropathy [Unknown]
  - C-reactive protein increased [Unknown]
  - Localised infection [Unknown]
  - Pain in extremity [Unknown]
  - Poor peripheral circulation [Unknown]
  - Condition aggravated [Not Recovered/Not Resolved]
  - Off label use [Unknown]

NARRATIVE: CASE EVENT DATE: 20220101
